FAERS Safety Report 8259045-6 (Version None)
Quarter: 2012Q2

REPORT INFORMATION
  Report Type: 
  Country: None (occurrence: None)
  Receive Date: 20120404
  Receipt Date: 20120402
  Transmission Date: 20120825
  Serious: Yes (Hospitalization)
  Sender: FDA-Public Use
  Company Number: JP-B.I. PHARMACEUTICALS,INC./RIDGEFIELD-2012-BP-01997NB

PATIENT
  Sex: Male

DRUGS (4)
  1. MUCOSIL-10 [Concomitant]
     Indication: EMPHYSEMA
     Dosage: 45 MG
     Route: 048
  2. SPIRIVA [Suspect]
     Indication: EMPHYSEMA
     Dosage: 5 MCG
     Route: 055
     Dates: start: 20101208, end: 20110809
  3. ADVAIR DISKUS 100/50 [Concomitant]
     Indication: EMPHYSEMA
     Dosage: 1000 MCG
     Route: 055
  4. MUCODYNE [Concomitant]
     Indication: EMPHYSEMA
     Dosage: 3 MCG
     Route: 048

REACTIONS (1)
  - PNEUMONIA [None]
